FAERS Safety Report 8325552-0 (Version None)
Quarter: 2012Q2

REPORT INFORMATION
  Report Type: 
  Country: None (occurrence: None)
  Receive Date: 20120427
  Receipt Date: 20120410
  Transmission Date: 20120825
  Serious: Yes (Death)
  Sender: FDA-Public Use
  Company Number: 2011-414

PATIENT
  Age: 76 Year
  Sex: Male

DRUGS (10)
  1. ALENDRONATE SODIUM [Concomitant]
  2. PANTOPRAZOLE [Concomitant]
  3. SULFAMETHOXAZOLE AND TRIMETHOPRIM [Concomitant]
  4. FUROSEMIDE [Concomitant]
  5. PHENOBARBITAL TAB [Concomitant]
  6. CIPROFLOXACIN [Concomitant]
  7. DILANTIN [Concomitant]
  8. AMOXICILLIN [Concomitant]
  9. FAZACLO ODT [Suspect]
     Dosage: 500 MG, QD, ORAL 100 MG, QD, ORAL
     Route: 048
     Dates: start: 20100329, end: 20110912
  10. FAZACLO ODT [Suspect]
     Dosage: 500 MG, QD, ORAL 100 MG, QD, ORAL
     Route: 048
     Dates: start: 20110912

REACTIONS (1)
  - PNEUMONIA [None]
